FAERS Safety Report 7366839-8 (Version None)
Quarter: 2011Q1

REPORT INFORMATION
  Report Type: 
  Country: None (occurrence: None)
  Receive Date: 20110311
  Receipt Date: 20110301
  Transmission Date: 20110831
  Serious: Yes (Other)
  Sender: FDA-Public Use
  Company Number: 027115

PATIENT
  Age: 60 Year
  Sex: Male

DRUGS (5)
  1. ENXOAPARIN [Concomitant]
  2. LANSOPRAZOLE [Concomitant]
  3. KEPPRA [Suspect]
     Indication: EPILEPSY
     Dosage: 2250 MG, 1000 MG IN THE MORNING AND 1250 AT NIGHT ORAL, 1 G BID, VARIOUS DOSES ORAL
     Route: 048
     Dates: start: 20100201, end: 20101101
  4. KEPPRA [Suspect]
     Indication: EPILEPSY
     Dosage: 2250 MG, 1000 MG IN THE MORNING AND 1250 AT NIGHT ORAL, 1 G BID, VARIOUS DOSES ORAL
     Route: 048
     Dates: start: 20100101, end: 20100101
  5. LACTULOSE [Concomitant]

REACTIONS (3)
  - CONVULSION [None]
  - PRODUCT QUALITY ISSUE [None]
  - DEPRESSED LEVEL OF CONSCIOUSNESS [None]
